FAERS Safety Report 11733768 (Version 1)
Quarter: 2015Q4

REPORT INFORMATION
  Report Type: Spontaneous
  Country: US (occurrence: None)
  Receive Date: 20151112
  Receipt Date: 20151112
  Transmission Date: 20160304
  Serious: Yes (Other)
  Sender: FDA-Public Use
  Company Number: None

PATIENT
  Age: 83 Year
  Sex: Male
  Weight: 80.8 kg

DRUGS (2)
  1. PIRFENIDONE [Suspect]
     Active Substance: PIRFENIDONE
     Indication: DYSPNOEA EXERTIONAL
     Route: 048
     Dates: start: 20150407, end: 20150831
  2. WARFARIN [Concomitant]
     Active Substance: WARFARIN
     Route: 048
     Dates: start: 20021121

REACTIONS (2)
  - Anticoagulation drug level below therapeutic [None]
  - Rash [None]

NARRATIVE: CASE EVENT DATE: 20150407
